FAERS Safety Report 5176753-4 (Version None)
Quarter: 2006Q4

REPORT INFORMATION
  Report Type: 
  Country: None (occurrence: None)
  Receive Date: 20061212
  Receipt Date: 20061212
  Transmission Date: 20070319
  Serious: Yes (Hospitalization, Disabling, Other)
  Sender: FDA-Public Use
  Company Number: None

PATIENT
  Age: 42 Year
  Sex: Male
  Weight: 129.2752 kg

DRUGS (10)
  1. AVONEX [Suspect]
     Indication: MULTIPLE SCLEROSIS
     Dosage: WEEKLY IM
     Route: 030
     Dates: start: 20040301, end: 20061101
  2. ACTOS [Concomitant]
  3. GLUCOTROL [Concomitant]
  4. MAVIK [Concomitant]
  5. HYDROCHLOROTHIAZIDE [Concomitant]
  6. GLUCOPHAGE [Concomitant]
  7. NIASPAN [Concomitant]
  8. TRICOR [Concomitant]
  9. LIPITOR [Concomitant]
  10. AVONEX [Concomitant]

REACTIONS (5)
  - CHOLECYSTECTOMY [None]
  - DRUG TOLERANCE [None]
  - PANCREATIC CYST [None]
  - PANCREATIC NECROSIS [None]
  - PANCREATITIS [None]
